FAERS Safety Report 18198287 (Version 9)
Quarter: 2020Q4

REPORT INFORMATION
  Report Type: Report from Study
  Country: US (occurrence: US)
  Receive Date: 20200826
  Receipt Date: 20201228
  Transmission Date: 20210113
  Serious: Yes (Hospitalization, Other)
  Sender: FDA-Public Use
  Company Number: US-B.I. PHARMACEUTICALS,INC./RIDGEFIELD-2019-MR-107329

PATIENT
  Age: 77 Year
  Sex: Male
  Weight: 117.9 kg

DRUGS (2)
  1. OFEV [Suspect]
     Active Substance: NINTEDANIB
     Route: 048
     Dates: start: 20200624
  2. OFEV [Suspect]
     Active Substance: NINTEDANIB
     Indication: IDIOPATHIC PULMONARY FIBROSIS
     Route: 048
     Dates: start: 20191004

REACTIONS (8)
  - Diarrhoea [Unknown]
  - Oesophageal irritation [Unknown]
  - Diarrhoea [Not Recovered/Not Resolved]
  - Myocardial infarction [Recovered/Resolved]
  - Haemoglobin decreased [Recovering/Resolving]
  - Decreased appetite [Not Recovered/Not Resolved]
  - Blood iron decreased [Recovering/Resolving]
  - Weight decreased [Not Recovered/Not Resolved]

NARRATIVE: CASE EVENT DATE: 201910
